FAERS Safety Report 16983117 (Version 1)
Quarter: 2019Q4

REPORT INFORMATION
  Report Type: Spontaneous
  Country: US (occurrence: US)
  Receive Date: 20191030
  Receipt Date: 20191030
  Transmission Date: 20200122
  Serious: Yes (Other)
  Sender: FDA-Public Use
  Company Number: None

PATIENT
  Age: 78 Year
  Sex: Female
  Weight: 49.5 kg

DRUGS (1)
  1. LEVETIRACETAM INJECTION [Suspect]
     Active Substance: LEVETIRACETAM
     Route: 042
     Dates: start: 20191004, end: 20191028

REACTIONS (2)
  - Seizure [None]
  - Therapy change [None]

NARRATIVE: CASE EVENT DATE: 20191010
